FAERS Safety Report 9277213 (Version 2)
Quarter: 2013Q2

REPORT INFORMATION
  Report Type: Report from Study
  Country: US (occurrence: US)
  Receive Date: 20130508
  Receipt Date: 20130513
  Transmission Date: 20140414
  Serious: Yes (Hospitalization)
  Sender: FDA-Public Use
  Company Number: US-009507513-1305USA000498

PATIENT
  Age: 55 Year
  Sex: Male
  Weight: 72.88 kg

DRUGS (9)
  1. INTEGRILIN [Suspect]
     Indication: THROMBOSIS
     Dosage: 10 ML, BID
     Route: 042
     Dates: start: 20120125, end: 20120125
  2. BIVALIRUDIN [Suspect]
     Indication: ANTICOAGULANT THERAPY
     Dosage: 2.12 MG/MGH
     Dates: start: 20120125, end: 20120125
  3. CANGRELOR [Suspect]
     Indication: PERCUTANEOUS CORONARY INTERVENTION
     Dosage: A BOLUS OF 5.4 ML OF CANGRELOR FOLLOWED BY 43.2 ML/HOUR INFUSION
     Route: 042
     Dates: start: 20120105, end: 20120125
  4. CANGRELOR [Suspect]
     Dosage: 43.2 ML, HR
     Route: 042
     Dates: start: 20120125, end: 20120125
  5. CANGRELOR [Suspect]
     Dosage: LOADING DOSE OF 4 CAPSULES
     Route: 048
     Dates: start: 20120125
  6. CANGRELOR [Suspect]
     Dosage: 4 CAPSULES
     Route: 048
     Dates: start: 20120125
  7. ASPIRIN [Concomitant]
     Dosage: 81 MG, UNK
  8. CLOPIDOGREL [Concomitant]
     Dosage: 75 MG, UNK
  9. HEPARIN [Concomitant]

REACTIONS (1)
  - Compartment syndrome [Recovered/Resolved]
